FAERS Safety Report 14373298 (Version 4)
Quarter: 2018Q1

REPORT INFORMATION
  Report Type: Report from Study
  Country: None (occurrence: US)
  Receive Date: 20180110
  Receipt Date: 20180125
  Transmission Date: 20180509
  Serious: Yes (Death, Life-Threatening, Hospitalization)
  Sender: FDA-Public Use
  Company Number: US-ABBVIE-18P-163-2209621-00

PATIENT
  Age: 30 Year
  Sex: Female
  Weight: 73 kg

DRUGS (49)
  1. MICAFUNGIN [Concomitant]
     Active Substance: MICAFUNGIN
     Indication: PROPHYLAXIS
  2. CHOLECALCIFEROL [Concomitant]
     Active Substance: CHOLECALCIFEROL
     Indication: PROPHYLAXIS
  3. MAGNESIUM OXIDE. [Concomitant]
     Active Substance: MAGNESIUM OXIDE
     Indication: PROPHYLAXIS
  4. MAGNESIUM SULFATE. [Concomitant]
     Active Substance: MAGNESIUM SULFATE
     Indication: HYPOMAGNESAEMIA
     Route: 042
     Dates: start: 20140806, end: 20180103
  5. POTASSIUM CHLORIDE 40 MEQ IN SODIUM CHLORIDE 0.9 % 120 ML IVPB [Concomitant]
     Indication: BLOOD POTASSIUM DECREASED
     Route: 042
     Dates: start: 20171212, end: 20180108
  6. LEVOFLOXACIN. [Concomitant]
     Active Substance: LEVOFLOXACIN
     Indication: ANTIBIOTIC PROPHYLAXIS
     Route: 048
     Dates: start: 20171226, end: 20180102
  7. VENETOCLAX. [Suspect]
     Active Substance: VENETOCLAX
     Route: 048
     Dates: start: 20180104, end: 20180107
  8. POTASSIUM CHLORIDE. [Concomitant]
     Active Substance: POTASSIUM CHLORIDE
     Indication: PROPHYLAXIS
     Route: 048
     Dates: start: 20170815, end: 20171225
  9. FAMOTIDINE. [Concomitant]
     Active Substance: FAMOTIDINE
     Indication: TRANSFUSION REACTION
     Route: 042
     Dates: start: 20171206, end: 20180104
  10. MICAFUNGIN [Concomitant]
     Active Substance: MICAFUNGIN
     Indication: FUNGAL INFECTION
     Route: 042
     Dates: start: 20140917, end: 20180110
  11. MEDROXYPROGESTERONE [Concomitant]
     Active Substance: MEDROXYPROGESTERONE
     Indication: PROPHYLAXIS
  12. AZTREONAM. [Concomitant]
     Active Substance: AZTREONAM
     Indication: FEBRILE NEUTROPENIA
     Route: 042
     Dates: start: 20171229, end: 20180102
  13. LORAZEPAM. [Concomitant]
     Active Substance: LORAZEPAM
     Indication: PROPHYLAXIS
     Route: 042
     Dates: start: 20140811, end: 20180110
  14. POTASSIUM CHLORIDE. [Concomitant]
     Active Substance: POTASSIUM CHLORIDE
     Indication: BLOOD POTASSIUM DECREASED
     Route: 042
     Dates: start: 20171204, end: 20180107
  15. FAMOTIDINE. [Concomitant]
     Active Substance: FAMOTIDINE
     Indication: PROPHYLAXIS
  16. SODIUM CHLORIDE 0.9 % BOLUS [Concomitant]
     Indication: DEHYDRATION
     Route: 040
     Dates: start: 20171129, end: 20171129
  17. OLANZAPINE. [Concomitant]
     Active Substance: OLANZAPINE
     Indication: PROPHYLAXIS OF NAUSEA AND VOMITING
     Route: 048
     Dates: start: 20171212
  18. VALACYCLOVIR [Concomitant]
     Active Substance: VALACYCLOVIR HYDROCHLORIDE
     Indication: ANTIVIRAL PROPHYLAXIS
     Route: 048
     Dates: start: 20171017
  19. VENETOCLAX. [Suspect]
     Active Substance: VENETOCLAX
     Route: 048
     Dates: start: 20171212, end: 20171212
  20. DIPHENHYDRAMINE. [Concomitant]
     Active Substance: DIPHENHYDRAMINE
     Indication: TRANSFUSION REACTION
     Route: 048
     Dates: start: 20140810, end: 20180109
  21. DIPHENHYDRAMINE. [Concomitant]
     Active Substance: DIPHENHYDRAMINE
     Indication: PROPHYLAXIS
     Route: 048
     Dates: start: 20171027, end: 20171212
  22. DAPTOMYCIN. [Concomitant]
     Active Substance: DAPTOMYCIN
     Indication: ANTIBIOTIC PROPHYLAXIS
     Route: 042
     Dates: start: 20170925
  23. VENETOCLAX. [Suspect]
     Active Substance: VENETOCLAX
     Route: 048
     Dates: start: 20171214, end: 20180102
  24. HYDROCORTISONE. [Concomitant]
     Active Substance: HYDROCORTISONE
     Indication: TRANSFUSION REACTION
     Route: 042
     Dates: start: 20170704, end: 20180104
  25. HYDROCORTISONE. [Concomitant]
     Active Substance: HYDROCORTISONE
     Indication: PROPHYLAXIS
  26. ACETAMINOPHEN. [Concomitant]
     Active Substance: ACETAMINOPHEN
     Indication: PROPHYLAXIS
  27. SODIUM CHLORIDE 0.9 % [Concomitant]
     Indication: TUMOUR LYSIS SYNDROME
  28. ABBV-075 [Suspect]
     Active Substance: MIVEBRESIB
     Indication: NEOPLASM MALIGNANT
     Route: 048
     Dates: start: 20171211, end: 20180102
  29. ABBV-075 [Suspect]
     Active Substance: MIVEBRESIB
     Route: 048
     Dates: start: 20180104, end: 20180107
  30. VENETOCLAX. [Suspect]
     Active Substance: VENETOCLAX
     Indication: NEOPLASM MALIGNANT
     Route: 048
     Dates: start: 20171211, end: 20171211
  31. ESCITALOPRAM OXALATE. [Concomitant]
     Active Substance: ESCITALOPRAM OXALATE
     Indication: ANXIETY
     Route: 048
     Dates: start: 20170411
  32. ALLOPURINOL. [Concomitant]
     Active Substance: ALLOPURINOL
     Indication: TUMOUR LYSIS SYNDROME
     Route: 048
     Dates: start: 20171207
  33. ALLOPURINOL. [Concomitant]
     Active Substance: ALLOPURINOL
     Indication: PROPHYLAXIS
  34. PANTOPRAZOLE [Concomitant]
     Active Substance: PANTOPRAZOLE
     Indication: GASTROOESOPHAGEAL REFLUX DISEASE
     Route: 048
     Dates: start: 20171103
  35. OXYCODONE IMMEDIATE RELEASE [Concomitant]
     Active Substance: OXYCODONE
     Indication: CELLULITIS
  36. ONDANSETRON [Concomitant]
     Active Substance: ONDANSETRON
     Indication: PROPHYLAXIS OF NAUSEA AND VOMITING
     Route: 048
     Dates: start: 20170907
  37. ACETAMINOPHEN. [Concomitant]
     Active Substance: ACETAMINOPHEN
     Indication: TRANSFUSION REACTION
     Route: 048
     Dates: start: 20140809, end: 20180109
  38. CHOLECALCIFEROL [Concomitant]
     Active Substance: CHOLECALCIFEROL
     Indication: VITAMIN D DECREASED
     Route: 048
     Dates: start: 20170912
  39. MAGNESIUM OXIDE. [Concomitant]
     Active Substance: MAGNESIUM OXIDE
     Indication: BLOOD MAGNESIUM DECREASED
     Route: 048
     Dates: start: 20171204
  40. POTASSIUM CHLORIDE 40 MEQ IN SODIUM CHLORIDE 0.9 % 120 ML IVPB [Concomitant]
     Indication: PROPHYLAXIS
  41. SODIUM CHLORIDE 0.9 % [Concomitant]
     Indication: DEHYDRATION
     Route: 040
     Dates: start: 20171212, end: 20171212
  42. VENETOCLAX. [Suspect]
     Active Substance: VENETOCLAX
     Route: 048
     Dates: start: 20171213, end: 20171213
  43. LORAZEPAM. [Concomitant]
     Active Substance: LORAZEPAM
     Indication: ANXIETY
     Route: 048
     Dates: start: 20171027
  44. MEDROXYPROGESTERONE [Concomitant]
     Active Substance: MEDROXYPROGESTERONE
     Indication: UTERINE HAEMORRHAGE
     Route: 048
     Dates: start: 20171121, end: 20171227
  45. MAGNESIUM SULFATE. [Concomitant]
     Active Substance: MAGNESIUM SULFATE
     Indication: PROPHYLAXIS
     Route: 042
     Dates: start: 20171204, end: 20171204
  46. SODIUM CHLORIDE 0.9 % BOLUS [Concomitant]
     Indication: PROPHYLAXIS
     Route: 042
     Dates: start: 20171214, end: 20171214
  47. SODIUM CHLORIDE 0.9 % BOLUS [Concomitant]
     Indication: TUMOUR LYSIS SYNDROME
     Route: 040
     Dates: start: 20180102, end: 20180102
  48. SODIUM CHLORIDE 0.9 % [Concomitant]
     Indication: PROPHYLAXIS
  49. OXYCODONE IMMEDIATE RELEASE [Concomitant]
     Active Substance: OXYCODONE
     Indication: GENITAL PAIN
     Route: 048
     Dates: start: 20140809, end: 20180101

REACTIONS (3)
  - Hepatic haematoma [Recovered/Resolved]
  - Abdominal pain [Not Recovered/Not Resolved]
  - Hepatic haematoma [Fatal]

NARRATIVE: CASE EVENT DATE: 20171229
